FAERS Safety Report 5551109-0 (Version None)
Quarter: 2007Q4

REPORT INFORMATION
  Report Type: 
  Country: None (occurrence: None)
  Receive Date: 20071212
  Receipt Date: 20071207
  Transmission Date: 20080405
  Serious: Yes (Hospitalization)
  Sender: FDA-Public Use
  Company Number: B0483954A

PATIENT
  Age: 77 Year
  Sex: Male
  Weight: 74.1 kg

DRUGS (11)
  1. ARIXTRA [Suspect]
     Indication: THROMBOSIS PROPHYLAXIS
     Dosage: 2.5MG PER DAY
     Route: 058
     Dates: start: 20070817, end: 20070820
  2. CEFAMEZIN [Suspect]
     Indication: DRUG USE FOR UNKNOWN INDICATION
     Dosage: 1G TWICE PER DAY
     Dates: start: 20070816, end: 20070819
  3. DIOVAN [Concomitant]
     Indication: HYPERTENSION
     Dosage: 80MG PER DAY
     Route: 048
  4. UNKNOWN DRUG [Concomitant]
     Indication: HYPERTENSION
     Route: 048
  5. POTACOL-R [Concomitant]
     Route: 042
     Dates: start: 20070816, end: 20070816
  6. SOLITA-T [Concomitant]
     Route: 042
     Dates: start: 20070816, end: 20070816
  7. VEEN-D [Concomitant]
     Route: 042
     Dates: start: 20070816, end: 20070816
  8. FENTANYL [Concomitant]
     Route: 042
     Dates: start: 20070816, end: 20070817
  9. ULTIVA [Concomitant]
     Route: 042
     Dates: start: 20070816, end: 20070817
  10. ROPION [Concomitant]
     Route: 042
     Dates: start: 20070816, end: 20070816
  11. ANTIBIOTIC [Concomitant]

REACTIONS (4)
  - ABDOMINAL PAIN [None]
  - HEPATIC FUNCTION ABNORMAL [None]
  - JAUNDICE [None]
  - VOMITING [None]
